FAERS Safety Report 5368213-2 (Version None)
Quarter: 2007Q2

REPORT INFORMATION
  Report Type: 
  Country: None (occurrence: None)
  Receive Date: 20070625
  Receipt Date: 20070618
  Transmission Date: 20071010
  Serious: Yes (Hospitalization, Other)
  Sender: FDA-Public Use
  Company Number: PHBS2007BR10439

PATIENT
  Age: 80 Year
  Sex: Male
  Weight: 75 kg

DRUGS (7)
  1. DIOVAN [Suspect]
     Indication: HYPERTENSION
     Dosage: 80 MG, QD
     Route: 048
  2. NILCITALGAN [Suspect]
     Indication: HYPERTENSION
  3. CLORANA [Concomitant]
     Dosage: 1 TABLET/DAY
     Route: 048
  4. PLAVIX [Concomitant]
     Dosage: 75 MG, QD
     Route: 048
  5. ASPIRIN [Concomitant]
     Dosage: 200 MG/DAY
     Route: 048
  6. ATORVASTATIN CALCIUM [Concomitant]
     Dosage: 80 MG, QD
     Route: 048
  7. BALCOR [Concomitant]
     Dosage: 30 MG, QD
     Route: 048

REACTIONS (2)
  - CARDIAC OPERATION [None]
  - DYSPNOEA [None]
